FAERS Safety Report 8477478-X (Version None)
Quarter: 2012Q2

REPORT INFORMATION
  Report Type: 
  Country: None (occurrence: None)
  Receive Date: 20120629
  Receipt Date: 20120627
  Transmission Date: 20120825
  Serious: Yes (Disabling, Other)
  Sender: FDA-Public Use
  Company Number: PHHY2012AU013318

PATIENT
  Sex: Male
  Weight: 84 kg

DRUGS (3)
  1. SANDOSTATIN LAR [Suspect]
     Indication: CARCINOID SYNDROME
     Dosage: 30 MG, UNK
     Route: 030
  2. CHEMOTHERAPEUTICS NOS [Concomitant]
     Indication: CARCINOID SYNDROME
     Dosage: UNK UKN, UNK
  3. SANDOSTATIN LAR [Suspect]
     Dosage: 20 MG, UNK
     Route: 030

REACTIONS (4)
  - METASTASIS [None]
  - NEOPLASM MALIGNANT [None]
  - MALAISE [None]
  - PAIN [None]
